FAERS Safety Report 18074235 (Version 1)
Quarter: 2020Q3

REPORT INFORMATION
  Report Type: Spontaneous
  Country: US (occurrence: US)
  Receive Date: 20200727
  Receipt Date: 20200727
  Transmission Date: 20201103
  Serious: No
  Sender: FDA-Public Use
  Company Number: US-ABBVIE-19K-163-2872964-00

PATIENT
  Sex: Female

DRUGS (1)
  1. SYNTHROID [Suspect]
     Active Substance: LEVOTHYROXINE SODIUM
     Indication: PRODUCT USED FOR UNKNOWN INDICATION
     Route: 048
     Dates: start: 2019

REACTIONS (4)
  - Urticaria [Unknown]
  - Gastrointestinal tract irritation [Unknown]
  - Coeliac disease [Unknown]
  - Asthma [Unknown]

NARRATIVE: CASE EVENT DATE: 2019
